FAERS Safety Report 4703490-X (Version None)
Quarter: 2005Q2

REPORT INFORMATION
  Report Type: 
  Country: None (occurrence: None)
  Receive Date: 20050628
  Receipt Date: 20050613
  Transmission Date: 20051028
  Serious: Yes (Life-Threatening, Other)
  Sender: FDA-Public Use
  Company Number: USA050188440

PATIENT
  Age: 61 Year
  Sex: Female
  Weight: 59 kg

DRUGS (14)
  1. XIGRIS [Suspect]
     Indication: SEPSIS
     Dosage: 24 UG/KG/HR
     Dates: start: 20050113, end: 20050113
  2. DUONEB [Concomitant]
  3. LOVENOX [Concomitant]
  4. SOLUMEDROM (METHYLPREDNISOLONE SODIUM SUCCINATE) [Concomitant]
  5. PROTONIX [Concomitant]
  6. ROCEPHIN [Concomitant]
  7. LEVAQUIN [Concomitant]
  8. FLAGYL [Concomitant]
  9. DOPAMINE HCL [Concomitant]
  10. ALBUMIN NOS [Concomitant]
  11. POTASSIUM PHOSPHATES [Concomitant]
  12. POTASSIUM CHLORIDE [Concomitant]
  13. HEPARIN [Concomitant]
  14. VERSED [Concomitant]

REACTIONS (16)
  - ARTERIOSPASM CORONARY [None]
  - BLOOD GLUCOSE INCREASED [None]
  - BLOOD PRESSURE DECREASED [None]
  - CARDIAC FAILURE CONGESTIVE [None]
  - CORONARY ARTERY THROMBOSIS [None]
  - EJECTION FRACTION DECREASED [None]
  - HAEMATOCRIT DECREASED [None]
  - HAEMOGLOBIN DECREASED [None]
  - ISCHAEMIC CARDIOMYOPATHY [None]
  - LUNG CONSOLIDATION [None]
  - MITRAL VALVE INCOMPETENCE [None]
  - MYOCARDIAL INFARCTION [None]
  - PLATELET COUNT DECREASED [None]
  - PULMONARY HYPERTENSION [None]
  - SUPRAVENTRICULAR TACHYCARDIA [None]
  - TRICUSPID VALVE INCOMPETENCE [None]
